FAERS Safety Report 7036995-X (Version None)
Quarter: 2010Q4

REPORT INFORMATION
  Report Type: 
  Country: None (occurrence: None)
  Receive Date: 20101011
  Receipt Date: 20100924
  Transmission Date: 20110411
  Serious: Yes (Other)
  Sender: FDA-Public Use
  Company Number: US-RANBAXY-2010RR-38605

PATIENT
  Sex: Female

DRUGS (4)
  1. PRAVASTATIN [Suspect]
     Indication: PRODUCT USED FOR UNKNOWN INDICATION
     Route: 065
  2. LEVAQUIN [Suspect]
     Indication: DERMATITIS
     Dosage: 500 MG, QD
     Route: 048
     Dates: start: 20060606, end: 20060615
  3. LEVAQUIN [Suspect]
     Indication: MASTITIS
  4. CIPROFLOXACIN [Suspect]
     Indication: PRODUCT USED FOR UNKNOWN INDICATION

REACTIONS (2)
  - TENDON RUPTURE [None]
  - TENDONITIS [None]
